FAERS Safety Report 6128112-5 (Version None)
Quarter: 2009Q1

REPORT INFORMATION
  Report Type: 
  Country: None (occurrence: None)
  Receive Date: 20090320
  Receipt Date: 20090320
  Transmission Date: 20090719
  Serious: No
  Sender: FDA-Public Use
  Company Number: None

PATIENT
  Age: 81 Year
  Sex: Female
  Weight: 65.7716 kg

DRUGS (1)
  1. OMNICEF [Suspect]
     Indication: BACTERIAL INFECTION
     Dosage: 1 CAP 2 X DAILY PO
     Route: 048
     Dates: start: 20090217, end: 20090226

REACTIONS (9)
  - HEADACHE [None]
  - IMPAIRED DRIVING ABILITY [None]
  - OROPHARYNGEAL PAIN [None]
  - PAIN [None]
  - RASH [None]
  - READING DISORDER [None]
  - SWELLING FACE [None]
  - VISION BLURRED [None]
  - VULVOVAGINAL DISCOMFORT [None]
